FAERS Safety Report 9462126 (Version 1)
Quarter: 2013Q3

REPORT INFORMATION
  Report Type: Spontaneous
  Country: US (occurrence: None)
  Receive Date: 20130815
  Receipt Date: 20130815
  Transmission Date: 20140515
  Serious: Yes (Hospitalization)
  Sender: FDA-Public Use
  Company Number: None

PATIENT
  Age: 74 None
  Sex: Male
  Weight: 80 kg

DRUGS (5)
  1. DILANTIN [Suspect]
     Indication: CONVULSION
     Dosage: 100 MG X 3 BID PO??CHRONIC
     Route: 048
  2. POTASSIUM CHLORIDE [Concomitant]
  3. PREVACID [Concomitant]
  4. COLACE [Concomitant]
  5. COD LIVER OIL [Concomitant]

REACTIONS (7)
  - Toxicity to various agents [None]
  - Fall [None]
  - Confusional state [None]
  - Blood albumin decreased [None]
  - Pyrexia [None]
  - Mass [None]
  - Lymphoma [None]
